FAERS Safety Report 21614313 (Version 2)
Quarter: 2022Q4

REPORT INFORMATION
  Report Type: Spontaneous
  Country: US (occurrence: None)
  Receive Date: 20221118
  Receipt Date: 20221207
  Transmission Date: 20230112
  Serious: No
  Sender: FDA-Public Use
  Company Number: 2022A354512

PATIENT
  Age: 29264 Day
  Sex: Male
  Weight: 126.6 kg

DRUGS (1)
  1. BYDUREON BCISE [Suspect]
     Active Substance: EXENATIDE
     Indication: Glucose tolerance impaired
     Route: 058

REACTIONS (4)
  - Neck deformity [Not Recovered/Not Resolved]
  - Off label use [Unknown]
  - Drug delivery system malfunction [Unknown]
  - Needle issue [Unknown]

NARRATIVE: CASE EVENT DATE: 20221002
